FAERS Safety Report 8029744-X (Version None)
Quarter: 2012Q1

REPORT INFORMATION
  Report Type: 
  Country: None (occurrence: None)
  Receive Date: 20120109
  Receipt Date: 20111230
  Transmission Date: 20120608
  Serious: Yes (Hospitalization)
  Sender: FDA-Public Use
  Company Number: US-BAYER-2012-001615

PATIENT
  Age: 25 Year
  Sex: Female
  Weight: 86.168 kg

DRUGS (6)
  1. METOPROLOL SUCCINATE [Concomitant]
  2. CLONAZEPAM [Concomitant]
  3. CLORAZEPATE DIPOTASSIUM [Concomitant]
  4. YASMIN [Suspect]
  5. YAZ [Suspect]
  6. ETODOLAC [Concomitant]
     Route: 048

REACTIONS (1)
  - CHOLECYSTITIS CHRONIC [None]
